FAERS Safety Report 23405638 (Version 2)
Quarter: 2024Q1

REPORT INFORMATION
  Report Type: Spontaneous
  Country: ES (occurrence: ES)
  Receive Date: 20240116
  Receipt Date: 20240125
  Transmission Date: 20240409
  Serious: Yes (Other)
  Sender: FDA-Public Use
  Company Number: ES-BAXTER-2024BAX009917

PATIENT
  Age: 62 Year
  Sex: Female
  Weight: 64 kg

DRUGS (20)
  1. RITUXIMAB [Suspect]
     Active Substance: RITUXIMAB
     Indication: Diffuse large B-cell lymphoma
     Dosage: 573.75 MG, EVERY 3 WEEKS
     Route: 042
     Dates: start: 20231128
  2. VINCRISTINE [Suspect]
     Active Substance: VINCRISTINE
     Indication: Diffuse large B-cell lymphoma
     Dosage: 2 MG, EVERY 3 WEEKS (2 MG, EVERY 3 WEEKS)
     Route: 042
     Dates: start: 20231128
  3. DOXORUBICIN HYDROCHLORIDE [Suspect]
     Active Substance: DOXORUBICIN HYDROCHLORIDE
     Indication: Diffuse large B-cell lymphoma
     Dosage: 76.5 MG, EVERY 3 WEEKS (76.5 MG, EVERY 3 WEEKS)
     Route: 042
     Dates: start: 20231128
  4. PREDNISONE [Suspect]
     Active Substance: PREDNISONE
     Indication: Diffuse large B-cell lymphoma
     Dosage: 100 MG, DAILY (100 MG, EVERY 1 DAYS)
     Route: 048
     Dates: start: 20231128, end: 20231128
  5. PREDNISONE [Suspect]
     Active Substance: PREDNISONE
     Dosage: 50 MG, DAILY (50 MG, EVERY 1 DAYS)
     Route: 048
     Dates: start: 20231129, end: 20231202
  6. PREDNISONE [Suspect]
     Active Substance: PREDNISONE
     Dosage: 100 MG, DAILY (100 MG, EVERY 1 DAYS)
     Route: 048
     Dates: start: 20231219
  7. CYCLOPHOSPHAMIDE [Suspect]
     Active Substance: CYCLOPHOSPHAMIDE
     Indication: Diffuse large B-cell lymphoma
     Dosage: 1147.5 MG, EVERY 3 WEEKS
     Route: 042
     Dates: start: 20231128
  8. EPCORITAMAB [Suspect]
     Active Substance: EPCORITAMAB
     Indication: Diffuse large B-cell lymphoma
     Dosage: 0.16 MG PRIMING DOSE; C1, D1, TOTAL
     Route: 058
     Dates: start: 20231128, end: 20231128
  9. EPCORITAMAB [Suspect]
     Active Substance: EPCORITAMAB
     Dosage: 0.8 MG INTERMEDIATE DOSE; C1, D8, TOTAL
     Route: 058
     Dates: start: 20231205, end: 20231205
  10. EPCORITAMAB [Suspect]
     Active Substance: EPCORITAMAB
     Dosage: 48 MG FULL DOSE; C1, D15, TOTAL
     Route: 058
     Dates: start: 20231212, end: 20231212
  11. EPCORITAMAB [Suspect]
     Active Substance: EPCORITAMAB
     Dosage: 48 MG C2, D1, EVERY 1 WEEKS
     Route: 058
     Dates: start: 20231219, end: 20231219
  12. DULOXETINE HYDROCHLORIDE [Concomitant]
     Active Substance: DULOXETINE HYDROCHLORIDE
     Indication: Mixed anxiety and depressive disorder
     Dosage: 30 MG, 1X/DAY (30 MG, EVERY 24 HOURS, START DATE: MAY2017)
     Route: 065
     Dates: start: 201705
  13. LEVOTHYROXINE SODIUM [Concomitant]
     Active Substance: LEVOTHYROXINE SODIUM
     Indication: Hypothyroidism
     Dosage: 88 MG, 1X/DAY (88 MG, EVERY 24 HOURS, START DATE: NOV2021)
     Route: 065
     Dates: start: 202111
  14. ALLOPURINOL [Concomitant]
     Active Substance: ALLOPURINOL
     Indication: Prophylaxis
     Dosage: 300 MG, 1X/DAY (300 MG, EVERY 24 HOURS)
     Route: 065
     Dates: start: 20231128
  15. SIMVASTATIN [Concomitant]
     Active Substance: SIMVASTATIN
     Indication: Type V hyperlipidaemia
     Dosage: 30 MG, 1X/DAY (30 MG, EVERY 24 HOURS)
     Route: 065
     Dates: start: 202205
  16. DIAZEPAM [Concomitant]
     Active Substance: DIAZEPAM
     Indication: Mixed anxiety and depressive disorder
     Dosage: 5 MG, 1X/DAY (5 MG, EVERY 24 HOURS)
     Route: 065
     Dates: start: 201705
  17. TRIMETOPRIMA SULFAMETOXAZOL [Concomitant]
     Indication: Prophylaxis
     Dosage: SULFAMETOXAZOL 800 MG/TRIMETOPRIMA 160 MG, EVERY 48 HOURS
     Route: 065
     Dates: start: 20231128
  18. PANTOPRAZOLE SODIUM [Concomitant]
     Active Substance: PANTOPRAZOLE SODIUM
     Indication: Prophylaxis
     Dosage: 20 MG, 1X/DAY (20 MG, EVERY 24 HOURS )
     Route: 065
     Dates: start: 20231213
  19. ONDANSETRON [Concomitant]
     Active Substance: ONDANSETRON
     Indication: Prophylaxis
     Dosage: 8 MG, 3X/DAY (8 MG, EVERY 8 HOURS)
     Route: 065
     Dates: start: 20231128
  20. ACYCLOVIR [Concomitant]
     Active Substance: ACYCLOVIR
     Indication: Prophylaxis
     Dosage: 800 MG, 1X/DAY (800 MG, EVERY 24 HOURS )
     Route: 065
     Dates: start: 20231128

REACTIONS (1)
  - Neutropenia [Not Recovered/Not Resolved]

NARRATIVE: CASE EVENT DATE: 20231227
